FAERS Safety Report 4727861-0 (Version None)
Quarter: 2005Q3

REPORT INFORMATION
  Report Type: 
  Country: None (occurrence: None)
  Receive Date: 20050728
  Receipt Date: 20050607
  Transmission Date: 20060218
  Serious: Yes (Other)
  Sender: FDA-Public Use
  Company Number: US-MERCK-0506USA01421

PATIENT
  Age: 66 Year
  Sex: Male
  Weight: 82 kg

DRUGS (6)
  1. VIOXX [Suspect]
     Indication: ARTHRITIS
     Route: 048
     Dates: start: 20001106, end: 20010611
  2. ASPIRIN [Concomitant]
     Route: 065
     Dates: start: 20011101
  3. ASPIRIN [Concomitant]
     Route: 065
     Dates: start: 20010601, end: 20011101
  4. ASPIRIN [Concomitant]
     Route: 065
     Dates: start: 20010601, end: 20011101
  5. ASPIRIN [Concomitant]
     Route: 065
     Dates: start: 20011101
  6. ZOCOR [Concomitant]
     Route: 048
     Dates: start: 20010601, end: 20040101

REACTIONS (9)
  - ADVERSE EVENT [None]
  - ANGIOPATHY [None]
  - CARDIAC ARREST [None]
  - CARDIAC DISORDER [None]
  - CARDIOVASCULAR DISORDER [None]
  - CAROTID ARTERY DISEASE [None]
  - INTESTINAL FUNCTIONAL DISORDER [None]
  - LUNG DISORDER [None]
  - MYOCARDIAL INFARCTION [None]
